FAERS Safety Report 19416642 (Version 1)
Quarter: 2021Q2

REPORT INFORMATION
  Report Type: Report from Study
  Country: CR (occurrence: CR)
  Receive Date: 20210614
  Receipt Date: 20210614
  Transmission Date: 20210717
  Serious: Yes (Other)
  Sender: FDA-Public Use
  Company Number: NVSC2021CR133027

PATIENT
  Age: 77 Year
  Sex: Female

DRUGS (1)
  1. VYMADA [Suspect]
     Active Substance: SACUBITRIL\VALSARTAN
     Indication: PRODUCT USED FOR UNKNOWN INDICATION
     Dosage: 50 MG, QD  (ONE DAILY, HALF IN THE MORNING AND HALF IN THE AFTERNOON)
     Route: 065

REACTIONS (3)
  - Inappropriate schedule of product administration [Unknown]
  - Cardiac disorder [Not Recovered/Not Resolved]
  - Wrong technique in product usage process [Unknown]
